FAERS Safety Report 5484372-5 (Version None)
Quarter: 2007Q4

REPORT INFORMATION
  Report Type: 
  Country: None (occurrence: None)
  Receive Date: 20071009
  Receipt Date: 20070924
  Transmission Date: 20080405
  Serious: Yes (Hospitalization)
  Sender: FDA-Public Use
  Company Number: 160029ISR

PATIENT
  Age: 58 Year
  Sex: Male

DRUGS (5)
  1. FLUOROURACIL [Suspect]
     Indication: COLORECTAL CANCER METASTATIC
     Dosage: 6016 MG (3200 MG/M2, 1 IN 2 WK) INTRAVENOUS (NOT OTHERWISE SPECIFIED)
     Route: 042
     Dates: start: 20070522, end: 20070716
  2. FOLINIC ACID [Suspect]
     Indication: COLORECTAL CANCER METASTATIC
     Dosage: 752 MG (400 MG/M2) INTRAVENOUS
     Route: 042
     Dates: start: 20070522, end: 20070716
  3. IRINOTECAN HCL [Suspect]
     Indication: COLORECTAL CANCER METASTATIC
     Dosage: 179 MG (95 MG/M2, 1 IN 2 WK)
     Route: 042
     Dates: start: 20070522, end: 20070716
  4. CETUXIMAB [Suspect]
     Indication: COLORECTAL CANCER METASTATIC
     Dosage: 940 MG (500 MG/M2, 1 IN 2 WK INTRAVENOUS
     Route: 042
     Dates: start: 20070522, end: 20070716
  5. OXALIPLATIN [Suspect]
     Indication: COLORECTAL CANCER METASTATIC
     Dosage: 160 MG (85 MG/M2, 1 IN 2 WK) INTRAVENOUS
     Route: 042
     Dates: start: 20070522, end: 20070716

REACTIONS (1)
  - UROSEPSIS [None]
